FAERS Safety Report 5062334-X (Version None)
Quarter: 2006Q3

REPORT INFORMATION
  Report Type: 
  Country: None (occurrence: None)
  Receive Date: 20060721
  Receipt Date: 20060710
  Transmission Date: 20061208
  Serious: Yes (Death, Life-Threatening)
  Sender: FDA-Public Use
  Company Number: 2006085627

PATIENT
  Age: 53 Year
  Sex: Male
  Weight: 55 kg

DRUGS (20)
  1. VFEND [Suspect]
     Indication: DRUG USE FOR UNKNOWN INDICATION
     Dosage: 400 MG (200 MG, FREQUENCY:  BID), ORAL
     Route: 048
     Dates: start: 20060414, end: 20060524
  2. FLUCONAZOLE [Concomitant]
  3. ALL OTHER THERAPEUTIC PRODUCTS (ALL OTHER THERAPEUTIC PRODUCTS) [Concomitant]
  4. OMEPRAZOLE [Concomitant]
  5. ALPRAZOLAM [Concomitant]
  6. TRAMADOL HCL [Concomitant]
  7. MORPHINE SULFATE [Concomitant]
  8. FENTANYL [Concomitant]
  9. STAVUDINE [Concomitant]
  10. LAMIVUDINE [Concomitant]
  11. SULFAMETHOXAZOLE + TRIMETHOPRIM [Concomitant]
  12. CASPOFUNGIN ACETATE (CASPOFUNGIN ACETATE) [Concomitant]
  13. ATOVAQUONE [Concomitant]
  14. AMPHOTERICIN B [Concomitant]
  15. CLORAZEPATE DIPOTASSIUM [Concomitant]
  16. ALIMEMAZINE TARTRATE (ALIMEMAZINE TARTRATE) [Concomitant]
  17. ENOXAPARIN SODIUM [Concomitant]
  18. FOLIC ACID [Concomitant]
  19. TETRAZEPAM (TETRAZEPAM) [Concomitant]
  20. LAMIVUDINE + ZIDOVUDINE [Concomitant]

REACTIONS (5)
  - ANAEMIA [None]
  - COMPUTERISED TOMOGRAM ABNORMAL [None]
  - DRUG LEVEL INCREASED [None]
  - HEPATITIS CHOLESTATIC [None]
  - VEIN DISORDER [None]
